FAERS Safety Report 18152919 (Version 2)
Quarter: 2020Q3

REPORT INFORMATION
  Report Type: Spontaneous
  Country: US (occurrence: US)
  Receive Date: 20200814
  Receipt Date: 20200924
  Transmission Date: 20201103
  Serious: Yes (Life-Threatening, Other)
  Sender: FDA-Public Use
  Company Number: US-GILEAD-2020-0490146

PATIENT
  Age: 87 Year
  Sex: Female
  Weight: 82 kg

DRUGS (62)
  1. PEPCID [Concomitant]
     Active Substance: FAMOTIDINE
     Dosage: 20 MG, QD
     Route: 050
     Dates: start: 20200803, end: 20200804
  2. PEPCID [Concomitant]
     Active Substance: FAMOTIDINE
     Dosage: 20 MG, QD
     Route: 042
     Dates: start: 20200728, end: 20200802
  3. CARDENE [Concomitant]
     Active Substance: NICARDIPINE HYDROCHLORIDE
     Dosage: 250 ML TITRATE
     Route: 042
     Dates: start: 20200727, end: 20200801
  4. SODIUM CHLORIDE. [Concomitant]
     Active Substance: SODIUM CHLORIDE
     Dosage: 250 ML
     Route: 042
     Dates: start: 20200728, end: 20200801
  5. GLUCAGEN [GLUCAGON] [Concomitant]
     Dosage: 1 MG
     Route: 030
     Dates: start: 20200728, end: 20200801
  6. K?LOR [Concomitant]
     Active Substance: POTASSIUM CHLORIDE
     Dosage: 40 MEQ, ONCE
     Route: 050
     Dates: start: 20200728, end: 20200728
  7. ASPIRIN [ACETYLSALICYLIC ACID] [Concomitant]
     Active Substance: ASPIRIN
     Dosage: 325 MG, QD
     Route: 050
     Dates: start: 20200728, end: 20200804
  8. DEFINITY [Concomitant]
     Active Substance: PERFLUTREN
     Dosage: UD PRN
     Route: 042
     Dates: start: 20200728, end: 20200730
  9. PROPOFOL. [Concomitant]
     Active Substance: PROPOFOL
     Dosage: 100 ML
     Dates: start: 20200727, end: 20200727
  10. QUELICIN [Concomitant]
     Active Substance: SUCCINYLCHOLINE CHLORIDE
     Dosage: 120 MG
     Route: 042
     Dates: start: 20200727, end: 20200727
  11. COMBIVENT [Concomitant]
     Active Substance: ALBUTEROL SULFATE\IPRATROPIUM BROMIDE
     Dosage: 1 PUFF Q6H
     Route: 055
     Dates: start: 20200801, end: 20200804
  12. DUONEB [Concomitant]
     Active Substance: ALBUTEROL SULFATE\IPRATROPIUM BROMIDE
     Dosage: 3 ML, Q4HR
     Route: 055
     Dates: start: 20200731, end: 20200731
  13. DEXTROSE. [Concomitant]
     Active Substance: DEXTROSE
     Dosage: UNK
     Route: 042
     Dates: start: 20200729, end: 20200804
  14. MAGNESIUM SULFATE. [Concomitant]
     Active Substance: MAGNESIUM SULFATE
     Dosage: 50 ML, ONCE
     Route: 042
     Dates: start: 20200728, end: 20200728
  15. CALCIUM GLUCONATE. [Concomitant]
     Active Substance: CALCIUM GLUCONATE
     Dosage: 50 ML, ONCE
     Route: 042
     Dates: start: 20200727, end: 20200728
  16. ZOFRAN [Concomitant]
     Active Substance: ONDANSETRON HYDROCHLORIDE
     Dosage: UNK
     Dates: start: 20200727, end: 20200727
  17. HYDRALAZINE [Concomitant]
     Active Substance: HYDRALAZINE HYDROCHLORIDE
     Dosage: 25 MG, Q8H
     Route: 048
     Dates: start: 20200802, end: 20200803
  18. CARDENE [Concomitant]
     Active Substance: NICARDIPINE HYDROCHLORIDE
     Dosage: 250 ML TITRATE
     Route: 042
     Dates: start: 20200802, end: 20200802
  19. CATHFLO ACTIVASE [Concomitant]
     Active Substance: ALTEPLASE
     Dosage: 6 MG, ONCE
     Route: 042
     Dates: start: 20200802, end: 20200802
  20. DUONEB [Concomitant]
     Active Substance: ALBUTEROL SULFATE\IPRATROPIUM BROMIDE
     Dosage: 3 ML, Q6H
     Route: 055
     Dates: start: 20200731, end: 20200803
  21. LASIX [Concomitant]
     Active Substance: FUROSEMIDE
     Dosage: UNK
     Dates: start: 20200727, end: 20200727
  22. SODIUM CHLORIDE. [Concomitant]
     Active Substance: SODIUM CHLORIDE
     Dosage: 30 ML, QD
     Route: 042
     Dates: start: 20200728, end: 20200801
  23. HEPARIN SODIUM. [Concomitant]
     Active Substance: HEPARIN SODIUM
     Dosage: 5000 UNITS Q 8 H
     Route: 058
     Dates: start: 20200728, end: 20200731
  24. INSULIN LISPRO [Concomitant]
     Active Substance: INSULIN LISPRO
     Dosage: UNK
     Route: 058
     Dates: start: 20200728, end: 20200804
  25. AFRIN [Concomitant]
     Active Substance: OXYMETAZOLINE
     Dosage: 1 SPRAY Q 8 H PRN
     Route: 045
     Dates: start: 20200727, end: 20200804
  26. SUBLIMAZE [Concomitant]
     Active Substance: FENTANYL CITRATE
     Dosage: UNK
     Route: 042
     Dates: start: 20200727, end: 20200727
  27. ETOMIDATE. [Concomitant]
     Active Substance: ETOMIDATE
     Dosage: 30 MG
     Route: 042
     Dates: start: 20200727, end: 20200727
  28. PLASMA?LYTE A [Concomitant]
     Active Substance: MAGNESIUM CHLORIDE\POTASSIUM CHLORIDE\SODIUM ACETATE\SODIUM CHLORIDE\SODIUM GLUCONATE
     Dosage: 1000 ML
     Route: 042
     Dates: start: 20200727, end: 20200802
  29. PEPCID [Concomitant]
     Active Substance: FAMOTIDINE
     Dosage: 20 MG, QD
     Route: 042
     Dates: start: 20200727, end: 20200727
  30. TOPROL XL [Concomitant]
     Active Substance: METOPROLOL SUCCINATE
     Dosage: 25 MG, QD
     Route: 048
     Dates: start: 20200802, end: 20200804
  31. CATHFLO ACTIVASE [Concomitant]
     Active Substance: ALTEPLASE
     Dosage: 2 MG, ONCE
     Route: 042
     Dates: start: 20200801, end: 20200801
  32. LOVENOX [Concomitant]
     Active Substance: ENOXAPARIN SODIUM
     Dosage: 40 MG, BID
     Route: 058
     Dates: start: 20200731, end: 20200804
  33. PREVNAR 13 [Concomitant]
     Active Substance: PNEUMOCOCCAL 13-VALENT CONJUGATE VACCINE
     Dosage: 0.5 ML, ONCE
     Route: 030
     Dates: start: 20200730, end: 20200730
  34. MIDAZOLAM HCL [Concomitant]
     Active Substance: MIDAZOLAM HYDROCHLORIDE
     Dosage: UNK
     Route: 042
     Dates: start: 20200727, end: 20200727
  35. DEXAMETHASONE. [Concomitant]
     Active Substance: DEXAMETHASONE
     Dosage: 6 MG, QD
     Route: 042
     Dates: start: 20200728, end: 20200804
  36. NALOXONE HCL [Concomitant]
     Active Substance: NALOXONE HYDROCHLORIDE
     Dosage: UNK
     Dates: start: 20200727, end: 20200727
  37. REMDESIVIR. [Suspect]
     Active Substance: REMDESIVIR
     Indication: COVID-19
     Dosage: 200 MG
     Route: 042
     Dates: start: 20200728, end: 20200728
  38. HYDRALAZINE [Concomitant]
     Active Substance: HYDRALAZINE HYDROCHLORIDE
     Dosage: 100 MG, Q8H
     Route: 048
     Dates: start: 20200804, end: 20200804
  39. DEXTROSE 5% [Concomitant]
     Active Substance: DEXTROSE
     Dosage: 1000 ML Q12H3M
     Route: 042
     Dates: start: 20200802, end: 20200802
  40. NORVASC [Concomitant]
     Active Substance: AMLODIPINE BESYLATE
     Dosage: 10 MG, QD
     Route: 050
     Dates: start: 20200801, end: 20200804
  41. SODIUM CHLORIDE. [Concomitant]
     Active Substance: SODIUM CHLORIDE
     Dosage: 250 ML
     Route: 042
     Dates: start: 20200728, end: 20200730
  42. DEXTROSE. [Concomitant]
     Active Substance: DEXTROSE
     Dosage: 4 DOSAGE FORM
     Route: 048
     Dates: start: 20200728, end: 20200804
  43. ATROPINE SULFATE. [Concomitant]
     Active Substance: ATROPINE SULFATE
     Dosage: UNK
     Dates: start: 20200728, end: 20200728
  44. PROPOFOL. [Concomitant]
     Active Substance: PROPOFOL
     Dosage: 100 ML
     Dates: start: 20200727, end: 20200801
  45. ROMAZICON [Concomitant]
     Active Substance: FLUMAZENIL
     Dosage: UNK
     Dates: start: 20200727, end: 20200727
  46. HYDRALAZINE [Concomitant]
     Active Substance: HYDRALAZINE HYDROCHLORIDE
     Dosage: 50 MG, Q8H
     Route: 048
     Dates: start: 20200803, end: 20200804
  47. ZYPREXA [Concomitant]
     Active Substance: OLANZAPINE
     Dosage: 5 MG, ONCE PRN
     Route: 042
     Dates: start: 20200801, end: 20200801
  48. LASIX [Concomitant]
     Active Substance: FUROSEMIDE
     Dosage: 40 MG, ONCE
     Route: 048
     Dates: start: 20200731, end: 20200731
  49. PROPOFOL. [Concomitant]
     Active Substance: PROPOFOL
     Dosage: 100 ML
     Dates: start: 20200727, end: 20200727
  50. SUBLIMAZE [Concomitant]
     Active Substance: FENTANYL CITRATE
     Dosage: 25 MCG Q 2H PRN
     Route: 042
     Dates: start: 20200727, end: 20200804
  51. QUELICIN [Concomitant]
     Active Substance: SUCCINYLCHOLINE CHLORIDE
     Dosage: UNK MG
     Dates: start: 20200727, end: 20200727
  52. REMDESIVIR. [Suspect]
     Active Substance: REMDESIVIR
     Dosage: 100 MG
     Route: 042
     Dates: start: 20200729, end: 20200801
  53. HYDRALAZINE [Concomitant]
     Active Substance: HYDRALAZINE HYDROCHLORIDE
     Dosage: 20 MG, Q6H PRN
     Route: 048
     Dates: start: 20200803, end: 20200804
  54. K?LOR [Concomitant]
     Active Substance: POTASSIUM CHLORIDE
     Dosage: 20 MEQ, ONCE
     Route: 050
     Dates: start: 20200729, end: 20200729
  55. ROCEPHINE [Concomitant]
     Active Substance: CEFTRIAXONE SODIUM
     Dosage: 2 G, QD
     Route: 042
     Dates: start: 20200728, end: 20200730
  56. MIDAZOLAM HCL [Concomitant]
     Active Substance: MIDAZOLAM HYDROCHLORIDE
     Dosage: 2 MG, ONCE
     Route: 042
     Dates: start: 20200728, end: 20200728
  57. DEXTROSE 5% [Concomitant]
     Active Substance: DEXTROSE
     Dosage: 1000 ML Q12H3M
     Route: 042
     Dates: start: 20200803, end: 20200804
  58. MIRALAX [Concomitant]
     Active Substance: POLYETHYLENE GLYCOL 3350
     Dosage: 17 G, BID
     Route: 050
     Dates: start: 20200730, end: 20200804
  59. LASIX [Concomitant]
     Active Substance: FUROSEMIDE
     Dosage: 20 MG, ONCE
     Route: 042
     Dates: start: 20200731, end: 20200731
  60. GLUCAGEN [GLUCAGON] [Concomitant]
     Dosage: 1 MG
     Route: 030
     Dates: start: 20200729, end: 20200804
  61. ZITHROMAX [Concomitant]
     Active Substance: AZITHROMYCIN DIHYDRATE
     Dosage: 500 MG, QD
     Route: 042
     Dates: start: 20200728, end: 20200730
  62. INSULIN REGULAR [INSULIN BOVINE] [Concomitant]
     Active Substance: INSULIN BEEF
     Dosage: UNK PRN
     Route: 058
     Dates: start: 20200727, end: 20200728

REACTIONS (1)
  - Acute kidney injury [Recovered/Resolved]

NARRATIVE: CASE EVENT DATE: 20200729
